FAERS Safety Report 23668237 (Version 1)
Quarter: 2024Q1

REPORT INFORMATION
  Report Type: Spontaneous
  Country: US (occurrence: None)
  Receive Date: 20240322
  Receipt Date: 20240322
  Transmission Date: 20240410
  Serious: Yes (Hospitalization)
  Sender: FDA-Public Use
  Company Number: None

PATIENT
  Age: 27 Year
  Sex: Male

DRUGS (4)
  1. TADALAFIL [Suspect]
     Active Substance: TADALAFIL
     Indication: Pulmonary arterial hypertension
     Dosage: 40 MG DAILY ORAL?
     Route: 048
  2. COUMADIN [Suspect]
     Active Substance: WARFARIN SODIUM
  3. OPSUMIT [Concomitant]
     Active Substance: MACITENTAN
  4. aspiring 81 mg [Concomitant]

REACTIONS (2)
  - Pulmonary haemorrhage [None]
  - Therapy cessation [None]

NARRATIVE: CASE EVENT DATE: 20240224
